FAERS Safety Report 15264055 (Version 1)
Quarter: 2018Q3

REPORT INFORMATION
  Report Type: Spontaneous
  Country: FR (occurrence: FR)
  Receive Date: 20180810
  Receipt Date: 20180810
  Transmission Date: 20181010
  Serious: Yes (Hospitalization)
  Sender: FDA-Public Use
  Company Number: FR-009507513-2006-145097-NL

PATIENT
  Age: 39 Year
  Sex: Female
  Weight: 77 kg

DRUGS (6)
  1. URBANYL [Concomitant]
     Active Substance: CLOBAZAM
     Indication: OLIGODENDROGLIOMA
     Dosage: DAILY DOSE: 10 MG
     Dates: start: 2001
  2. NEURONTIN [Concomitant]
     Active Substance: GABAPENTIN
     Indication: OLIGODENDROGLIOMA
     Dosage: 2400 MG, QD
  3. IMPLANON [Suspect]
     Active Substance: ETONOGESTREL
     Indication: CONTRACEPTION
     Dosage: CONTINUING: NO
     Route: 050
     Dates: start: 20040101, end: 20060706
  4. ZOLOFT [Concomitant]
     Active Substance: SERTRALINE HYDROCHLORIDE
     Indication: OLIGODENDROGLIOMA
     Dosage: FREQUENCY: ONCE
     Dates: start: 200601
  5. TRILEPTAL [Interacting]
     Active Substance: OXCARBAZEPINE
     Indication: OLIGODENDROGLIOMA
     Dosage: DOSE TEXT: 900 MG IN THE MORNING AND 1200 MG IN THE EVENING, CONTINUING: YES, FREQUENCY: BID
     Route: 048
     Dates: start: 20010101
  6. CODOLIPRANE [Concomitant]
     Active Substance: ACETAMINOPHEN\CODEINE PHOSPHATE
     Dosage: FREQUENCY: PRN

REACTIONS (2)
  - Pregnancy [Unknown]
  - Therapeutic response decreased [Unknown]

NARRATIVE: CASE EVENT DATE: 20060215
